FAERS Safety Report 4288798-7 (Version None)
Quarter: 2004Q1

REPORT INFORMATION
  Report Type: 
  Country: None (occurrence: None)
  Receive Date: 20040203
  Receipt Date: 20031016
  Transmission Date: 20041129
  Serious: Yes (Other)
  Sender: FDA-Public Use
  Company Number: 200326115BWH

PATIENT

DRUGS (2)
  1. AVELOX [Suspect]
  2. MULTIPLE MEDICATIONS [Concomitant]

REACTIONS (1)
  - CONVULSION [None]
